FAERS Safety Report 5505986-X (Version None)
Quarter: 2007Q4

REPORT INFORMATION
  Report Type: 
  Country: None (occurrence: None)
  Receive Date: 20071101
  Receipt Date: 20071101
  Transmission Date: 20080405
  Serious: Yes (Hospitalization)
  Sender: FDA-Public Use
  Company Number: None

PATIENT
  Age: 37 Year
  Sex: Male

DRUGS (1)
  1. ENBREL [Suspect]
     Indication: ANKYLOSING SPONDYLITIS
     Dosage: ONCE A WEEK
     Dates: start: 20060201, end: 20060301

REACTIONS (2)
  - CARCINOID TUMOUR PULMONARY [None]
  - PNEUMONIA [None]
